FAERS Safety Report 25395009 (Version 1)
Quarter: 2025Q2

REPORT INFORMATION
  Report Type: Spontaneous
  Country: CN (occurrence: CN)
  Receive Date: 20250604
  Receipt Date: 20250604
  Transmission Date: 20250716
  Serious: Yes (Hospitalization, Other)
  Sender: RANBAXY
  Company Number: CN-SUN PHARMACEUTICAL INDUSTRIES INC-2025R1-509831

PATIENT
  Age: 72 Year
  Sex: Female

DRUGS (1)
  1. WARFARIN [Suspect]
     Active Substance: WARFARIN
     Indication: Cerebral artery occlusion
     Route: 065

REACTIONS (6)
  - Ischaemic stroke [Unknown]
  - Cerebral haemorrhage [Unknown]
  - Dizziness [Unknown]
  - Speech disorder [Unknown]
  - Muscular weakness [Unknown]
  - Hemiplegia [Unknown]
